FAERS Safety Report 20504791 (Version 3)
Quarter: 2022Q2

REPORT INFORMATION
  Report Type: Report from Study
  Country: DE (occurrence: DE)
  Receive Date: 20220223
  Receipt Date: 20220405
  Transmission Date: 20220721
  Serious: Yes (Hospitalization)
  Sender: FDA-Public Use
  Company Number: DE-BAYER-2022A023829

PATIENT
  Age: 80 Year
  Sex: Male

DRUGS (1)
  1. VENTAVIS [Suspect]
     Active Substance: ILOPROST
     Indication: Pulmonary arterial hypertension
     Dosage: 5X DAILY, 5ID
     Route: 055
     Dates: start: 20210820

REACTIONS (6)
  - Dyspnoea [Recovered/Resolved]
  - Malaise [Recovered/Resolved]
  - General physical health deterioration [Recovered/Resolved]
  - Back pain [Recovered/Resolved]
  - Discomfort [Recovered/Resolved]
  - Inappropriate schedule of product administration [Unknown]

NARRATIVE: CASE EVENT DATE: 20220212
